FAERS Safety Report 8840448 (Version 5)
Quarter: 2013Q2

REPORT INFORMATION
  Report Type: Spontaneous
  Country: US (occurrence: US)
  Receive Date: 20121015
  Receipt Date: 20130423
  Transmission Date: 20140414
  Serious: Yes (Hospitalization)
  Sender: FDA-Public Use
  Company Number: CHPA2012US021348

PATIENT
  Age: 38 Year
  Sex: Female

DRUGS (2)
  1. TRANSDERM SCOP [Suspect]
     Indication: MOTION SICKNESS
     Dosage: 1 DF, EVERY 3 DAYS
     Route: 062
     Dates: start: 2009, end: 20120929
  2. KEFLEX                                  /UNK/ [Concomitant]

REACTIONS (1)
  - Hypokalaemia [Recovered/Resolved]
